FAERS Safety Report 14226197 (Version 1)
Quarter: 2017Q4

REPORT INFORMATION
  Report Type: Spontaneous
  Country: JP (occurrence: JP)
  Receive Date: 20171127
  Receipt Date: 20171127
  Transmission Date: 20180321
  Serious: Yes (Other)
  Sender: FDA-Public Use
  Company Number: JP-PFIZER INC-2017486111

PATIENT

DRUGS (8)
  1. SEIBULE [Suspect]
     Active Substance: MIGLITOL
     Dosage: 50 MG, 3X/DAY
     Route: 048
     Dates: start: 201204
  2. TAKEPRON [Suspect]
     Active Substance: LANSOPRAZOLE
     Dosage: 15 MG, 2X/DAY
     Route: 048
     Dates: start: 201204
  3. CADUET [Suspect]
     Active Substance: AMLODIPINE BESYLATE\ATORVASTATIN CALCIUM
     Indication: HYPERTENSION
     Dosage: 1 DF, 1X/DAY
     Route: 048
     Dates: start: 201204
  4. CEROCRAL [Suspect]
     Active Substance: IFENPRODIL
     Dosage: 20 MG, 3X/DAY
     Route: 048
     Dates: start: 201204
  5. MAINTATE [Suspect]
     Active Substance: BISOPROLOL FUMARATE
     Dosage: 2.5 MG, 1X/DAY
     Route: 048
     Dates: start: 201204
  6. NESINA [Suspect]
     Active Substance: ALOGLIPTIN BENZOATE
     Dosage: 25 MG, 1X/DAY
     Route: 048
     Dates: start: 201204
  7. ZYLORIC [Suspect]
     Active Substance: ALLOPURINOL
     Dosage: 100 MG, 1X/DAY
     Route: 048
     Dates: start: 201204
  8. MICAMLO [Suspect]
     Active Substance: AMLODIPINE BESYLATE\TELMISARTAN
     Dosage: 1 DF, 1X/DAY
     Route: 048
     Dates: start: 201204

REACTIONS (36)
  - Dizziness postural [Unknown]
  - Hot flush [Unknown]
  - Respiration abnormal [Unknown]
  - Arrhythmia [Unknown]
  - Dizziness [Unknown]
  - Angiopathy [Unknown]
  - Pruritus generalised [Unknown]
  - Vision blurred [Unknown]
  - Gait disturbance [Unknown]
  - Tension headache [Unknown]
  - Judgement impaired [Unknown]
  - Eye pain [Unknown]
  - Muscle tightness [Unknown]
  - Visual acuity reduced [Unknown]
  - Ear discomfort [Unknown]
  - Head discomfort [Unknown]
  - Musculoskeletal stiffness [Unknown]
  - Mental impairment [Unknown]
  - Pain [Unknown]
  - Ear pain [Unknown]
  - Large intestine polyp [Unknown]
  - Decreased appetite [Unknown]
  - Dysphonia [Unknown]
  - Motor dysfunction [Unknown]
  - Visual impairment [Unknown]
  - Musculoskeletal chest pain [Unknown]
  - Insomnia [Unknown]
  - Palpitations [Unknown]
  - Nausea [Unknown]
  - Somnolence [Unknown]
  - Mental disorder [Unknown]
  - Hypoacusis [Unknown]
  - Headache [Unknown]
  - Memory impairment [Unknown]
  - Chest pain [Unknown]
  - Neck pain [Unknown]
